FAERS Safety Report 15852943 (Version 1)
Quarter: 2019Q1

REPORT INFORMATION
  Report Type: Spontaneous
  Country: IT (occurrence: IT)
  Receive Date: 20190122
  Receipt Date: 20190122
  Transmission Date: 20190417
  Serious: Yes (Hospitalization)
  Sender: FDA-Public Use
  Company Number: IT-BAYER-200510381GDS

PATIENT
  Age: 75 Year
  Sex: Male

DRUGS (1)
  1. CIPROXINE [Suspect]
     Active Substance: CIPROFLOXACIN
     Indication: URINARY TRACT INFECTION
     Route: 048
     Dates: start: 20050101, end: 20050101

REACTIONS (7)
  - Arthritis [Recovering/Resolving]
  - Glomerulonephritis [Recovering/Resolving]
  - Purpura [Recovering/Resolving]
  - Dermatitis [Unknown]
  - Skin necrosis [Recovering/Resolving]
  - Hypersensitivity [Recovering/Resolving]
  - Nephrotic syndrome [Recovering/Resolving]

NARRATIVE: CASE EVENT DATE: 20050102
